FAERS Safety Report 18468009 (Version 1)
Quarter: 2020Q4

REPORT INFORMATION
  Report Type: Spontaneous
  Country: US (occurrence: US)
  Receive Date: 20201104
  Receipt Date: 20201104
  Transmission Date: 20210114
  Serious: No
  Sender: FDA-Public Use
  Company Number: None

PATIENT
  Age: 77 Year
  Sex: Male

DRUGS (1)
  1. DOFETILIDE (DOFETILIDE 125MCG CAP,) [Suspect]
     Active Substance: DOFETILIDE
     Indication: VENTRICULAR EXTRASYSTOLES
     Route: 048
     Dates: start: 20200224, end: 20200226

REACTIONS (4)
  - Therapy cessation [None]
  - Palpitations [None]
  - Electrocardiogram QT prolonged [None]
  - Headache [None]

NARRATIVE: CASE EVENT DATE: 20200226
